FAERS Safety Report 4545784-7 (Version None)
Quarter: 2005Q1

REPORT INFORMATION
  Report Type: 
  Country: None (occurrence: None)
  Receive Date: 20050103
  Receipt Date: 20041216
  Transmission Date: 20050727
  Serious: Yes (Life-Threatening, Hospitalization, Other)
  Sender: FDA-Public Use
  Company Number: USA041286346

PATIENT
  Age: 71 Year
  Sex: Female

DRUGS (5)
  1. FORTEO [Suspect]
     Dates: start: 20030701, end: 20040918
  2. TOPROL-XL [Concomitant]
  3. TEGRETOL (CARBAMAZEPINE RIVOPHARM) [Concomitant]
  4. PLAVIX [Concomitant]
  5. LESCOL XL [Concomitant]

REACTIONS (2)
  - CARDIAC DEATH [None]
  - VENTRICULAR FIBRILLATION [None]
